FAERS Safety Report 16209411 (Version 1)
Quarter: 2019Q2

REPORT INFORMATION
  Report Type: Spontaneous
  Country: FR (occurrence: FR)
  Receive Date: 20190417
  Receipt Date: 20190417
  Transmission Date: 20190711
  Serious: Yes (Death, Hospitalization, Other)
  Sender: FDA-Public Use
  Company Number: FR-MYLANLABS-2019M1036535

PATIENT
  Age: 55 Year
  Sex: Male
  Weight: 60 kg

DRUGS (11)
  1. PIPERACILLIN/TAZOBACTAM [Suspect]
     Active Substance: PIPERACILLIN SODIUM\TAZOBACTAM SODIUM
     Indication: PRODUCT USED FOR UNKNOWN INDICATION
     Dosage: 4 GRAM, TID/12 G, QD, STRENGHT 4G/500MG
     Route: 042
     Dates: start: 20160603
  2. PRINCI B                           /00499701/ [Concomitant]
     Active Substance: CYANOCOBALAMIN\PYRIDOXINE HYDROCHLORIDE\THIAMINE
     Dosage: UNK
  3. SELENIUM [Concomitant]
     Active Substance: SELENIUM
     Dosage: 1 DF, QW, STRENGHT 10MICROGRAM/ML
     Route: 042
     Dates: start: 20160414
  4. PANTOPRAZOLE [Concomitant]
     Active Substance: PANTOPRAZOLE
  5. PROGRAF [Concomitant]
     Active Substance: TACROLIMUS\TACROLIMUS ANHYDROUS
     Dosage: 1.5 MG, MORNING
  6. PROGRAF [Concomitant]
     Active Substance: TACROLIMUS\TACROLIMUS ANHYDROUS
     Dosage: 1.5 MG, EVENING
  7. MYCOPHENOLATE MOFETIL. [Concomitant]
     Active Substance: MYCOPHENOLATE MOFETIL
     Dosage: UNK
  8. ROVALCYTE [Concomitant]
     Active Substance: VALGANCICLOVIR HYDROCHLORIDE
     Dosage: UNK
  9. SPECIAFOLDINE [Concomitant]
     Active Substance: FOLIC ACID
  10. ZEPATIER [Suspect]
     Active Substance: ELBASVIR\GRAZOPREVIR
     Indication: HEPATITIS C
     Dosage: 1 DF, QD
     Route: 048
     Dates: start: 20160314, end: 20160610
  11. CORTANCYL [Concomitant]
     Active Substance: PREDNISONE

REACTIONS (10)
  - Seizure [Recovered/Resolved]
  - Sepsis [Unknown]
  - Coma [Recovered/Resolved]
  - Ammonia decreased [Unknown]
  - Erysipelas [Unknown]
  - Vascular device infection [Unknown]
  - Death [Fatal]
  - Pneumocystis jirovecii pneumonia [Unknown]
  - Encephalopathy [Unknown]
  - Cytomegalovirus infection [Unknown]

NARRATIVE: CASE EVENT DATE: 2016
